FAERS Safety Report 6511901-2 (Version None)
Quarter: 2009Q4

REPORT INFORMATION
  Report Type: 
  Country: None (occurrence: None)
  Receive Date: 20091222
  Receipt Date: 20090623
  Transmission Date: 20100525
  Serious: No
  Sender: FDA-Public Use
  Company Number: US-ASTRAZENECA-2009UW17310

PATIENT
  Age: 77 Year
  Sex: Female
  Weight: 86.2 kg

DRUGS (5)
  1. CRESTOR [Suspect]
     Indication: BLOOD CHOLESTEROL INCREASED
     Route: 048
     Dates: start: 20081001, end: 20081001
  2. CRESTOR [Suspect]
     Route: 048
     Dates: start: 20090601, end: 20090623
  3. PLAVIX [Concomitant]
  4. TYLENOL (CAPLET) [Concomitant]
  5. MECLIZINE [Concomitant]

REACTIONS (4)
  - MALAISE [None]
  - MUSCULOSKELETAL STIFFNESS [None]
  - MYALGIA [None]
  - NAUSEA [None]
